FAERS Safety Report 16618079 (Version 1)
Quarter: 2019Q3

REPORT INFORMATION
  Report Type: Spontaneous
  Country: US (occurrence: US)
  Receive Date: 20190723
  Receipt Date: 20190723
  Transmission Date: 20191004
  Serious: No
  Sender: FDA-Public Use
  Company Number: US-GALDERMA-US19039728

PATIENT
  Age: 15 Year
  Sex: Male

DRUGS (1)
  1. PROACTIV MD ADAPALENE ACNE TREATMENT [Suspect]
     Active Substance: ADAPALENE
     Indication: ACNE
     Dosage: 0.1%
     Route: 061
     Dates: start: 20181023, end: 201810

REACTIONS (5)
  - Overdose [Recovered/Resolved]
  - Skin fissures [Recovering/Resolving]
  - Inappropriate schedule of product administration [Recovered/Resolved]
  - Dry skin [Recovering/Resolving]
  - Skin exfoliation [Recovering/Resolving]

NARRATIVE: CASE EVENT DATE: 201810
